FAERS Safety Report 25921071 (Version 1)
Quarter: 2025Q4

REPORT INFORMATION
  Report Type: Spontaneous
  Country: GB (occurrence: None)
  Receive Date: 20251014
  Receipt Date: 20251014
  Transmission Date: 20260119
  Serious: Yes (Life-Threatening)
  Sender: B. BRAUN MEDICAL INC.
  Company Number: GB-B. Braun Medical Inc.-GB-BBM-202503954

PATIENT
  Age: 33 Year
  Sex: Male

DRUGS (2)
  1. ACETAMINOPHEN [Suspect]
     Active Substance: ACETAMINOPHEN
     Dosage: 1 G FOUR TIMES A DAY ORAL
     Dates: start: 20250603, end: 20250603
  2. ACETAMINOPHEN [Concomitant]
     Active Substance: ACETAMINOPHEN
     Indication: Lower respiratory tract infection
     Dosage: 2 TABLET FOUR TIMES A DAY ORAL
     Dates: start: 20250512, end: 20250512

REACTIONS (1)
  - Abdominal pain [Recovered/Resolved]
